FAERS Safety Report 7554801-1 (Version None)
Quarter: 2011Q2

REPORT INFORMATION
  Report Type: 
  Country: None (occurrence: None)
  Receive Date: 20110617
  Receipt Date: 20110603
  Transmission Date: 20111010
  Serious: Yes (Hospitalization, Other)
  Sender: FDA-Public Use
  Company Number: US-JNJFOC-20110602112

PATIENT
  Sex: Male
  Weight: 57.8 kg

DRUGS (5)
  1. INFLIXIMAB, RECOMBINANT [Suspect]
     Indication: INFLAMMATORY BOWEL DISEASE
     Route: 042
     Dates: start: 20110305
  2. CIPROFLOXACIN HCL [Concomitant]
     Route: 065
  3. INFLIXIMAB, RECOMBINANT [Suspect]
     Route: 042
     Dates: start: 20100606
  4. MESALAMINE [Concomitant]
     Route: 065
  5. METRONIDAZOLE [Concomitant]
     Route: 065

REACTIONS (1)
  - RECTAL ABSCESS [None]
